FAERS Safety Report 5921761-6 (Version None)
Quarter: 2008Q4

REPORT INFORMATION
  Report Type: 
  Country: None (occurrence: None)
  Receive Date: 20081017
  Receipt Date: 20081015
  Transmission Date: 20090506
  Serious: Yes (Hospitalization)
  Sender: FDA-Public Use
  Company Number: KR-BAYER-200811009BYL

PATIENT
  Age: 57 Year
  Sex: Male
  Weight: 71 kg

DRUGS (15)
  1. BAY43-9006 [Suspect]
     Indication: HEPATIC NEOPLASM MALIGNANT
     Dosage: TOTAL DAILY DOSE: 800 MG
     Route: 048
     Dates: start: 20080423, end: 20080524
  2. BAY43-9006 [Suspect]
     Route: 048
     Dates: start: 20080525, end: 20080923
  3. GRANDPAZE-F [Concomitant]
     Indication: DYSPEPSIA
     Route: 048
     Dates: start: 20080117
  4. FUROSEMIDE [Concomitant]
     Indication: PROPHYLAXIS
     Route: 048
     Dates: start: 20080509, end: 20080915
  5. FUROSEMIDE [Concomitant]
     Route: 048
     Dates: start: 20080916, end: 20080922
  6. FUROSEMIDE [Concomitant]
     Route: 048
     Dates: start: 20080923, end: 20080930
  7. SPIRONOLACTONE [Concomitant]
     Indication: PROPHYLAXIS
     Route: 048
     Dates: start: 20080509, end: 20080915
  8. SPIRONOLACTONE [Concomitant]
     Route: 048
     Dates: start: 20080916, end: 20080922
  9. SPIRONOLACTONE [Concomitant]
     Route: 048
     Dates: start: 20080923, end: 20080930
  10. URSODESOXYCHOLIC ACID [Concomitant]
     Indication: PROPHYLAXIS
     Route: 048
     Dates: start: 20080509
  11. METOCLOPRAMIDE [Concomitant]
     Indication: DYSPEPSIA
     Route: 048
     Dates: start: 20080421, end: 20080505
  12. METOCLOPRAMIDE [Concomitant]
     Route: 048
     Dates: start: 20080930
  13. METOCLOPRAMIDE [Concomitant]
     Route: 048
     Dates: start: 20080909, end: 20080929
  14. MOSAPRIDE CITRATE [Concomitant]
     Indication: DYSPEPSIA
     Route: 048
     Dates: start: 20080421, end: 20080505
  15. ALBIS [Concomitant]
     Indication: PROPHYLAXIS AGAINST GASTROINTESTINAL ULCER

REACTIONS (2)
  - ASCITES [None]
  - OESOPHAGEAL VARICES HAEMORRHAGE [None]
